FAERS Safety Report 4520650-1 (Version None)
Quarter: 2004Q4

REPORT INFORMATION
  Report Type: 
  Country: None (occurrence: None)
  Receive Date: 20041207
  Receipt Date: 20041201
  Transmission Date: 20050328
  Serious: Yes (Hospitalization)
  Sender: FDA-Public Use
  Company Number: NZ-MERCK-0412NZL00001

PATIENT
  Age: 59 Year
  Sex: Female

DRUGS (9)
  1. ZOCOR [Suspect]
     Indication: BLOOD CHOLESTEROL INCREASED
     Route: 048
     Dates: start: 20030101
  2. SOTALOL HYDROCHLORIDE [Concomitant]
     Indication: CARDIAC DISORDER
     Route: 048
  3. DILTIAZEM HYDROCHLORIDE [Concomitant]
     Indication: CARDIAC DISORDER
     Route: 048
  4. VITAMINS (UNSPECIFIED) [Concomitant]
     Route: 065
  5. CALCIUM (UNSPECIFIED) [Concomitant]
     Route: 065
  6. FOLIC ACID [Concomitant]
     Route: 048
  7. WARFARIN [Concomitant]
     Indication: CARDIAC DISORDER
     Route: 048
  8. STUDY DRUG (UNSPECIFIED) [Suspect]
     Route: 051
     Dates: start: 20041101, end: 20041101
  9. STUDY DRUG (UNSPECIFIED) [Suspect]
     Route: 051
     Dates: start: 20041101, end: 20041101

REACTIONS (4)
  - FEELING HOT [None]
  - HEAT RASH [None]
  - HYPERTENSION [None]
  - HYPOAESTHESIA ORAL [None]
